FAERS Safety Report 19972747 (Version 1)
Quarter: 2021Q4

REPORT INFORMATION
  Report Type: Spontaneous
  Country: US (occurrence: US)
  Receive Date: 20211019
  Receipt Date: 20211019
  Transmission Date: 20220303
  Serious: Yes (Hospitalization)
  Sender: FDA-Public Use
  Company Number: None

PATIENT
  Sex: Male

DRUGS (2)
  1. BOSULIF [Suspect]
     Active Substance: BOSUTINIB MONOHYDRATE
     Indication: Chronic lymphocytic leukaemia
     Route: 048
     Dates: start: 20210806
  2. IMBRUVICA [Concomitant]
     Active Substance: IBRUTINIB
     Dates: start: 20190108

REACTIONS (1)
  - Therapy interrupted [None]
